FAERS Safety Report 4624477-1 (Version None)
Quarter: 2005Q1

REPORT INFORMATION
  Report Type: 
  Country: None (occurrence: None)
  Receive Date: 20050331
  Receipt Date: 20050218
  Transmission Date: 20050727
  Serious: Yes (Hospitalization)
  Sender: FDA-Public Use
  Company Number: US-MERCK-0502USA02647

PATIENT
  Age: 56 Year
  Sex: Male
  Weight: 95 kg

DRUGS (6)
  1. VIOXX [Suspect]
     Indication: ARTHRALGIA
     Route: 048
     Dates: start: 20021113, end: 20030202
  2. MONOPRIL [Concomitant]
     Indication: HYPERTENSION
     Route: 065
  3. MOTRIN [Concomitant]
     Route: 065
     Dates: start: 19950101, end: 20020101
  4. NORVASC [Concomitant]
     Indication: HYPERTENSION
     Route: 065
  5. ACIPHEX [Concomitant]
     Indication: GASTROOESOPHAGEAL REFLUX DISEASE
     Route: 065
  6. TYLENOL (CAPLET) [Concomitant]
     Route: 065
     Dates: start: 19950101, end: 20020101

REACTIONS (7)
  - ACUTE MYOCARDIAL INFARCTION [None]
  - CORONARY ARTERY DISEASE [None]
  - EMOTIONAL DISTRESS [None]
  - HYPERLIPIDAEMIA [None]
  - HYPERTENSION [None]
  - OEDEMA PERIPHERAL [None]
  - SINUS BRADYCARDIA [None]
